FAERS Safety Report 9626477 (Version 1)
Quarter: 2013Q4

REPORT INFORMATION
  Report Type: Spontaneous
  Country: BE (occurrence: BE)
  Receive Date: 20131016
  Receipt Date: 20131016
  Transmission Date: 20140711
  Serious: Yes (Other)
  Sender: FDA-Public Use
  Company Number: BE-ROCHE-1287016

PATIENT
  Age: 62 Year
  Sex: Female

DRUGS (6)
  1. HERCEPTIN [Suspect]
     Indication: BREAST CANCER
     Route: 065
     Dates: start: 20101112
  2. XELODA [Suspect]
     Indication: BREAST CANCER METASTATIC
     Route: 065
     Dates: start: 201306
  3. PACLITAXEL [Suspect]
     Indication: BREAST CANCER
     Route: 065
     Dates: start: 201112, end: 201206
  4. PACLITAXEL [Suspect]
     Route: 065
     Dates: start: 201301, end: 201306
  5. CARBOPLATINUM [Suspect]
     Indication: BREAST CANCER
     Route: 065
     Dates: start: 20101112
  6. DOCETAXEL [Suspect]
     Indication: BREAST CANCER
     Route: 065
     Dates: start: 20101112

REACTIONS (5)
  - Gastrointestinal toxicity [Unknown]
  - Neutropenia [Unknown]
  - Anaemia [Unknown]
  - Inflammatory carcinoma of the breast [Recovered/Resolved]
  - Disease progression [Unknown]
